FAERS Safety Report 8027412-1 (Version None)
Quarter: 2011Q4

REPORT INFORMATION
  Report Type: 
  Country: None (occurrence: None)
  Receive Date: 20111130
  Receipt Date: 20111114
  Transmission Date: 20120403
  Serious: Yes (Hospitalization, Other)
  Sender: FDA-Public Use
  Company Number: US201108001106

PATIENT
  Age: 59 Year
  Sex: Male
  Weight: 154.2 kg

DRUGS (9)
  1. HYDROCHLOROTHIAZIDE [Concomitant]
  2. WELLBUTRIN (IBUPROFEN HYDROCHLORIDE) [Concomitant]
  3. LISINOPRIL [Concomitant]
  4. VICODIN [Concomitant]
  5. METFORMIN HCL [Concomitant]
  6. AVANDIA [Concomitant]
  7. CHANTIX (VARENICLINE TARTERATE) [Concomitant]
  8. IBUPROFEN [Concomitant]
  9. BYETTA [Suspect]
     Dosage: 10 MG, BID
     Dates: start: 20060501, end: 20090901

REACTIONS (3)
  - PANCREATIC PSEUDOCYST [None]
  - PANCREATITIS ACUTE [None]
  - CHOLELITHIASIS [None]
